FAERS Safety Report 6749113-X (Version None)
Quarter: 2010Q2

REPORT INFORMATION
  Report Type: 
  Country: None (occurrence: None)
  Receive Date: 20100601
  Receipt Date: 20100524
  Transmission Date: 20101027
  Serious: Yes (Death)
  Sender: FDA-Public Use
  Company Number: BR-BRISTOL-MYERS SQUIBB COMPANY-15122617

PATIENT
  Age: 85 Year
  Sex: Female

DRUGS (1)
  1. APROZIDE [Suspect]

REACTIONS (1)
  - DEATH [None]
